FAERS Safety Report 4881881-4 (Version None)
Quarter: 2006Q1

REPORT INFORMATION
  Report Type: 
  Country: None (occurrence: None)
  Receive Date: 20060112
  Receipt Date: 20060112
  Transmission Date: 20060701
  Serious: Yes (Life-Threatening, Hospitalization)
  Sender: FDA-Public Use
  Company Number: None

PATIENT
  Sex: Male

DRUGS (1)
  1. CYCLOSPORINE [Suspect]
     Indication: PSORIASIS
     Route: 048
     Dates: start: 20050907, end: 20051109

REACTIONS (1)
  - RENAL FAILURE ACUTE [None]
